FAERS Safety Report 15610450 (Version 1)
Quarter: 2018Q4

REPORT INFORMATION
  Report Type: Spontaneous
  Country: US (occurrence: US)
  Receive Date: 20181113
  Receipt Date: 20181113
  Transmission Date: 20190205
  Serious: No
  Sender: FDA-Public Use
  Company Number: US-ROCHE-2040593

PATIENT
  Sex: Female

DRUGS (1)
  1. TAMIFLU [Suspect]
     Active Substance: OSELTAMIVIR PHOSPHATE
     Indication: PRODUCT USED FOR UNKNOWN INDICATION
     Dosage: DRY SYRUP 30 MG/5 ML
     Route: 048
     Dates: start: 20171208, end: 201712

REACTIONS (4)
  - Retching [Unknown]
  - Product taste abnormal [Unknown]
  - Vomiting [Unknown]
  - Product odour abnormal [Unknown]
